FAERS Safety Report 9958951 (Version 2)
Quarter: 2014Q1

REPORT INFORMATION
  Report Type: Report from Study
  Country: US (occurrence: US)
  Receive Date: 20140305
  Receipt Date: 20140305
  Transmission Date: 20141002
  Serious: No
  Sender: FDA-Public Use
  Company Number: US-ABBVIE-13P-163-1084916-00

PATIENT
  Age: 48 Year
  Sex: Female
  Weight: 97.61 kg

DRUGS (6)
  1. HUMIRA [Suspect]
     Indication: PSORIATIC ARTHROPATHY
     Dates: start: 20121218, end: 20121218
  2. HUMIRA [Suspect]
     Route: 058
     Dates: start: 20130101, end: 201305
  3. HUMIRA [Suspect]
     Route: 058
     Dates: start: 201305
  4. VITAMIN D [Concomitant]
     Indication: PRODUCT USED FOR UNKNOWN INDICATION
  5. OSTEOBIFLEX [Concomitant]
     Indication: PRODUCT USED FOR UNKNOWN INDICATION
  6. NORETHINDRONE [Concomitant]
     Indication: PRODUCT USED FOR UNKNOWN INDICATION

REACTIONS (7)
  - Gait disturbance [Not Recovered/Not Resolved]
  - Oral herpes [Not Recovered/Not Resolved]
  - Paraesthesia [Not Recovered/Not Resolved]
  - Psoriasis [Not Recovered/Not Resolved]
  - Arthralgia [Not Recovered/Not Resolved]
  - Pain in extremity [Not Recovered/Not Resolved]
  - Drug dose omission [Unknown]
